FAERS Safety Report 7419237-2 (Version None)
Quarter: 2011Q2

REPORT INFORMATION
  Report Type: 
  Country: None (occurrence: None)
  Receive Date: 20110415
  Receipt Date: 20110406
  Transmission Date: 20111010
  Serious: Yes (Other)
  Sender: FDA-Public Use
  Company Number: DE-ASTRAZENECA-2011SE19907

PATIENT
  Sex: Female

DRUGS (5)
  1. MOBLOC [Suspect]
     Route: 048
  2. OMEPRAZOLE [Suspect]
     Route: 048
  3. OMEPRAZOLE [Suspect]
     Dosage: 40 MG EVERY 2ND DAY
     Route: 048
  4. DURADIURET [Concomitant]
  5. TAVOR [Concomitant]

REACTIONS (1)
  - HYPERTENSIVE CRISIS [None]
